FAERS Safety Report 7554150-1 (Version None)
Quarter: 2011Q2

REPORT INFORMATION
  Report Type: 
  Country: None (occurrence: None)
  Receive Date: 20110617
  Receipt Date: 20110615
  Transmission Date: 20111010
  Serious: No
  Sender: FDA-Public Use
  Company Number: US-PFIZER INC-2011131588

PATIENT
  Age: 68 Year
  Sex: Female
  Weight: 47.619 kg

DRUGS (2)
  1. IBUPROFEN (ADVIL) [Suspect]
     Indication: HEADACHE
     Dosage: 400 MG, DAILY
     Route: 048
     Dates: start: 20110601
  2. IBUPROFEN (ADVIL) [Suspect]
     Indication: ARTHRALGIA

REACTIONS (1)
  - DRUG INEFFECTIVE [None]
